FAERS Safety Report 8403403-3 (Version None)
Quarter: 2012Q2

REPORT INFORMATION
  Report Type: 
  Country: None (occurrence: None)
  Receive Date: 20120601
  Receipt Date: 20120521
  Transmission Date: 20120825
  Serious: Yes (Life-Threatening, Hospitalization)
  Sender: FDA-Public Use
  Company Number: CH-UCBSA-057459

PATIENT
  Sex: Male

DRUGS (8)
  1. VIMPAT [Suspect]
     Indication: EPILEPSY
     Route: 048
  2. KEPPRA [Suspect]
     Indication: EPILEPSY
     Dosage: DURING DIALYSIS
     Route: 042
  3. VIMPAT [Suspect]
     Route: 048
  4. KEPPRA [Suspect]
     Indication: STATUS EPILEPTICUS
     Dosage: DURING DIALYSIS
     Route: 042
  5. KEPPRA [Suspect]
     Route: 048
  6. VIMPAT [Suspect]
     Indication: STATUS EPILEPTICUS
     Route: 048
  7. KEPPRA [Suspect]
     Dosage: DURING DIALYSIS
     Route: 042
  8. VIMPAT [Suspect]
     Route: 048

REACTIONS (5)
  - HYPERTENSION [None]
  - ARRHYTHMIA [None]
  - STATUS EPILEPTICUS [None]
  - APNOEA [None]
  - DRUG INEFFECTIVE [None]
